FAERS Safety Report 5794021-4 (Version None)
Quarter: 2008Q2

REPORT INFORMATION
  Report Type: 
  Country: None (occurrence: None)
  Receive Date: 20080627
  Receipt Date: 20080617
  Transmission Date: 20081010
  Serious: Yes (Other)
  Sender: FDA-Public Use
  Company Number: US-PFIZER INC-2008039031

PATIENT
  Sex: Female
  Weight: 102.5 kg

DRUGS (12)
  1. CHANTIX [Suspect]
     Indication: SMOKING CESSATION THERAPY
     Route: 048
     Dates: start: 20080301, end: 20080427
  2. PRILOSEC [Concomitant]
  3. DEPAKOTE [Concomitant]
  4. CLARITIN [Concomitant]
  5. FLONASE [Concomitant]
  6. PRIMIDONE [Concomitant]
  7. PROMETHAZINE [Concomitant]
  8. MAXALT [Concomitant]
  9. SOMA [Concomitant]
  10. LORTAB [Concomitant]
  11. TOPAMAX [Concomitant]
  12. LIDODERM [Concomitant]
     Route: 062

REACTIONS (5)
  - ANXIETY [None]
  - DEPRESSION [None]
  - IRRITABILITY [None]
  - SUICIDAL IDEATION [None]
  - THYROID MASS [None]
